FAERS Safety Report 15180304 (Version 4)
Quarter: 2018Q3

REPORT INFORMATION
  Report Type: Report from Study
  Country: DE (occurrence: DE)
  Receive Date: 20180723
  Receipt Date: 20180829
  Transmission Date: 20181010
  Serious: Yes (Life-Threatening, Hospitalization)
  Sender: FDA-Public Use
  Company Number: DE-TEVA-2018-DE-927604

PATIENT
  Age: 77 Year
  Sex: Female

DRUGS (19)
  1. AVASTIN [Suspect]
     Active Substance: BEVACIZUMAB
     Route: 042
     Dates: start: 20131218
  2. CARBOPLATIN. [Concomitant]
     Active Substance: CARBOPLATIN
     Dosage: SAME DOSE ON 06/NOV/2013
     Route: 065
     Dates: start: 20130925, end: 20130925
  3. BAYOTENSIN [Concomitant]
     Active Substance: NITRENDIPINE
     Route: 042
     Dates: start: 20140625
  4. PACLITAXEL. [Suspect]
     Active Substance: PACLITAXEL
     Dosage: SAME DOSE ON 16/OCT/2013
     Route: 042
     Dates: start: 20130925, end: 20130925
  5. AVASTIN [Suspect]
     Active Substance: BEVACIZUMAB
     Route: 042
     Dates: start: 20131016
  6. CARBOPLATIN. [Concomitant]
     Active Substance: CARBOPLATIN
     Indication: OVARIAN CANCER
     Route: 065
     Dates: start: 20131127, end: 20131127
  7. AVASTIN [Suspect]
     Active Substance: BEVACIZUMAB
     Indication: OVARIAN CANCER
     Route: 065
     Dates: start: 20130904, end: 20130904
  8. AVASTIN [Suspect]
     Active Substance: BEVACIZUMAB
     Route: 042
     Dates: start: 20140918, end: 20140918
  9. BAYOTENSIN [Concomitant]
     Active Substance: NITRENDIPINE
     Indication: HYPERTENSION
     Dosage: 10 MILLIGRAM DAILY;
     Route: 048
     Dates: start: 20140423, end: 20140423
  10. SPASMEX (GERMANY) [Concomitant]
     Indication: INCONTINENCE
     Route: 048
     Dates: start: 201307
  11. PACLITAXEL. [Suspect]
     Active Substance: PACLITAXEL
     Indication: OVARIAN CANCER
     Dosage: 304?308 MG. SAME DOSE ON 04/SEP/2013
     Route: 042
     Dates: start: 20130814, end: 20131127
  12. CARBOPLATIN. [Concomitant]
     Active Substance: CARBOPLATIN
     Dosage: SAME DOSE ON 16/NOV/2013
     Route: 065
     Dates: start: 20130904, end: 20130904
  13. AVASTIN [Suspect]
     Active Substance: BEVACIZUMAB
     Route: 042
     Dates: start: 20131106
  14. PACLITAXEL. [Suspect]
     Active Substance: PACLITAXEL
     Dosage: SAME DOSE ON 27/NOV/2013
     Route: 042
     Dates: start: 20131106, end: 20131106
  15. AVASTIN [Suspect]
     Active Substance: BEVACIZUMAB
     Route: 042
     Dates: start: 20140129
  16. CARBOPLATIN. [Concomitant]
     Active Substance: CARBOPLATIN
     Route: 065
     Dates: start: 20130814, end: 20130814
  17. RAMIPRIL. [Concomitant]
     Active Substance: RAMIPRIL
     Indication: HYPERTENSION
     Route: 048
     Dates: start: 20140926
  18. AVASTIN [Suspect]
     Active Substance: BEVACIZUMAB
     Route: 065
     Dates: start: 20140827, end: 20140827
  19. VALSARTAN. [Concomitant]
     Active Substance: VALSARTAN
     Indication: HYPERTENSION
     Dosage: 320 MILLIGRAM DAILY;
     Route: 048
     Dates: start: 20140926

REACTIONS (18)
  - Aspiration [Recovered/Resolved]
  - Hypoxia [Recovered/Resolved]
  - Pneumonia aspiration [Recovered/Resolved]
  - Anaemia [Recovered/Resolved]
  - Asphyxia [Recovered/Resolved]
  - Dysgeusia [Recovered/Resolved]
  - Pain in extremity [Recovered/Resolved]
  - Hemiparesis [Recovering/Resolving]
  - Dizziness [Not Recovered/Not Resolved]
  - Nausea [Not Recovered/Not Resolved]
  - Memory impairment [Not Recovered/Not Resolved]
  - Cerebral infarction [Recovered/Resolved with Sequelae]
  - Aphasia [Recovering/Resolving]
  - Paraesthesia [Not Recovered/Not Resolved]
  - Bone pain [Recovered/Resolved]
  - Haemoglobin decreased [Not Recovered/Not Resolved]
  - Cardiovascular disorder [Not Recovered/Not Resolved]
  - Hypercholesterolaemia [Not Recovered/Not Resolved]

NARRATIVE: CASE EVENT DATE: 20130904
